FAERS Safety Report 7605622-2 (Version None)
Quarter: 2011Q3

REPORT INFORMATION
  Report Type: 
  Country: None (occurrence: None)
  Receive Date: 20110713
  Receipt Date: 20110708
  Transmission Date: 20111222
  Serious: Yes (Other)
  Sender: FDA-Public Use
  Company Number: FR-JNJFOC-20110611988

PATIENT
  Age: 45 Year
  Sex: Female

DRUGS (3)
  1. REMICADE [Suspect]
     Indication: CROHN'S DISEASE
     Route: 042
     Dates: start: 20100801
  2. REMICADE [Suspect]
     Route: 042
     Dates: start: 20110501
  3. PENTASA [Concomitant]

REACTIONS (9)
  - DRY SKIN [None]
  - PRURITUS [None]
  - DIZZINESS [None]
  - VULVOVAGINAL DRYNESS [None]
  - IMPAIRED HEALING [None]
  - NASAL CONGESTION [None]
  - HEADACHE [None]
  - COUGH [None]
  - RASH [None]
